FAERS Safety Report 10811848 (Version 1)
Quarter: 2015Q1

REPORT INFORMATION
  Report Type: Report from Study
  Country: PR (occurrence: PR)
  Receive Date: 20150217
  Receipt Date: 20150217
  Transmission Date: 20150721
  Serious: No
  Sender: FDA-Public Use
  Company Number: PR-ABBVIE-12P-131-0925944-00

PATIENT
  Sex: Female
  Weight: 59.02 kg

DRUGS (5)
  1. HUMIRA [Suspect]
     Active Substance: ADALIMUMAB
     Indication: PSORIASIS
     Route: 058
     Dates: start: 2012, end: 201312
  2. TRIAMCINOLONE CREAM [Concomitant]
     Indication: PSORIASIS
     Route: 061
  3. LEVOTHYROXIN [Concomitant]
     Active Substance: LEVOTHYROXINE
     Indication: THYROID DISORDER
     Route: 048
  4. ALOE VERA [Concomitant]
     Active Substance: ALOE VERA LEAF
     Indication: PSORIASIS
  5. UNKNOWN CREAM [Concomitant]
     Active Substance: UNSPECIFIED INGREDIENT
     Indication: PSORIASIS
     Route: 061

REACTIONS (2)
  - Drug ineffective [Recovered/Resolved]
  - Psoriasis [Recovered/Resolved]
